FAERS Safety Report 23312006 (Version 1)
Quarter: 2023Q4

REPORT INFORMATION
  Report Type: Spontaneous
  Country: GB (occurrence: None)
  Receive Date: 20231219
  Receipt Date: 20231219
  Transmission Date: 20240109
  Serious: Yes (Life-Threatening, Other)
  Sender: FDA-Public Use
  Company Number: 2023A284335

PATIENT
  Age: 54 Year
  Sex: Female

DRUGS (1)
  1. DAPAGLIFLOZIN [Suspect]
     Active Substance: DAPAGLIFLOZIN

REACTIONS (2)
  - Diabetic ketoacidosis [Recovered/Resolved]
  - Diabetic coma [Recovered/Resolved]

NARRATIVE: CASE EVENT DATE: 20231001
